FAERS Safety Report 5356756-7 (Version None)
Quarter: 2007Q2

REPORT INFORMATION
  Report Type: 
  Country: None (occurrence: None)
  Receive Date: 20070612
  Receipt Date: 20070601
  Transmission Date: 20071010
  Serious: Yes (Hospitalization)
  Sender: FDA-Public Use
  Company Number: 2006BI006260

PATIENT
  Age: 59 Year
  Sex: Male

DRUGS (7)
  1. AVONEX [Suspect]
     Indication: MULTIPLE SCLEROSIS
     Dosage: 30 UG; IM
     Route: 030
     Dates: start: 20010508
  2. AVONEX [Suspect]
     Indication: MULTIPLE SCLEROSIS
     Dosage: 30 UG; IM
     Route: 030
     Dates: start: 20060515
  3. FLOMAX [Concomitant]
  4. LIPITOR [Concomitant]
  5. COMBIVENT [Concomitant]
  6. STOOL SOFTENER (NOS) [Concomitant]
  7. COUMADIN [Concomitant]

REACTIONS (3)
  - CONSTIPATION [None]
  - INFECTION [None]
  - INTESTINAL OBSTRUCTION [None]
